FAERS Safety Report 6746341-4 (Version None)
Quarter: 2010Q2

REPORT INFORMATION
  Report Type: 
  Country: None (occurrence: None)
  Receive Date: 20100528
  Receipt Date: 20100517
  Transmission Date: 20101027
  Serious: Yes (Other)
  Sender: FDA-Public Use
  Company Number: KR-PFIZER INC-2010061739

PATIENT
  Sex: Male

DRUGS (2)
  1. TERRAMYCIN V CAP [Suspect]
     Indication: KERATITIS
     Dosage: UNK
     Route: 047
  2. TERRAMYCIN V CAP [Suspect]
     Indication: XEROPHTHALMIA

REACTIONS (1)
  - INTRAOCULAR PRESSURE INCREASED [None]
